FAERS Safety Report 10012642 (Version 2)
Quarter: 2017Q2

REPORT INFORMATION
  Report Type: Report from Study
  Country: CA (occurrence: CA)
  Receive Date: 20140314
  Receipt Date: 20170619
  Transmission Date: 20170829
  Serious: Yes (Other)
  Sender: FDA-Public Use
  Company Number: PHHY2014CA030620

PATIENT
  Sex: Female

DRUGS (1)
  1. GILENYA [Suspect]
     Active Substance: FINGOLIMOD HYDROCHLORIDE
     Indication: RELAPSING-REMITTING MULTIPLE SCLEROSIS
     Dosage: 0.5 MG, QD
     Route: 048
     Dates: start: 20130213, end: 20170524

REACTIONS (20)
  - Trendelenburg^s symptom [Unknown]
  - Limb discomfort [Unknown]
  - Optic neuritis [Recovering/Resolving]
  - Hypertonia [Unknown]
  - Fatigue [Unknown]
  - Multiple sclerosis relapse [Unknown]
  - Memory impairment [Unknown]
  - Drug ineffective [Unknown]
  - Hypoaesthesia [Unknown]
  - Paraesthesia [Unknown]
  - Diplopia [Unknown]
  - Muscular weakness [Unknown]
  - Balance disorder [Unknown]
  - Aphasia [Unknown]
  - Somnolence [Unknown]
  - Concomitant disease aggravated [Unknown]
  - Restlessness [Unknown]
  - Fall [Unknown]
  - Temperature intolerance [Unknown]
  - Gait disturbance [Unknown]
